FAERS Safety Report 7427899-9 (Version None)
Quarter: 2011Q2

REPORT INFORMATION
  Report Type: 
  Country: None (occurrence: None)
  Receive Date: 20110413
  Receipt Date: 20110405
  Transmission Date: 20111010
  Serious: Yes (Other)
  Sender: FDA-Public Use
  Company Number: 2011SP015162

PATIENT
  Age: 33 Year
  Sex: Female

DRUGS (1)
  1. NEXPLANON (ETONOGESTREL / 01502301/) [Suspect]
     Indication: CONTRACEPTION
     Dosage: 1 DF; SC
     Route: 058
     Dates: start: 20110127

REACTIONS (3)
  - ERYSIPELAS [None]
  - COMPLICATION OF DEVICE REMOVAL [None]
  - IMPLANT SITE INFECTION [None]
